FAERS Safety Report 8816098 (Version 1)
Quarter: 2012Q4

REPORT INFORMATION
  Report Type: 
  Country: US (occurrence: US)
  Receive Date: 20120928
  Receipt Date: 20120928
  Transmission Date: 20130627
  Serious: Yes (Other)
  Sender: FDA-Public Use
  Company Number: US-PFIZER INC-2012240448

PATIENT
  Age: 81 Year
  Sex: Female
  Weight: 72.11 kg

DRUGS (1)
  1. CADUET [Suspect]
     Indication: HYPERTENSION
     Dosage: 10/40 mg, daily
     Dates: start: 2007

REACTIONS (1)
  - Deafness [Not Recovered/Not Resolved]
